FAERS Safety Report 8321602-6 (Version None)
Quarter: 2012Q2

REPORT INFORMATION
  Report Type: 
  Country: None (occurrence: None)
  Receive Date: 20120430
  Receipt Date: 20120425
  Transmission Date: 20120825
  Serious: No
  Sender: FDA-Public Use
  Company Number: US-BAYER-2012-040810

PATIENT

DRUGS (1)
  1. CIPROFLOXACIN HCL [Suspect]
     Dosage: 400 MG, UNK
     Route: 042

REACTIONS (1)
  - INJECTION SITE EXTRAVASATION [None]
